FAERS Safety Report 12410363 (Version 1)
Quarter: 2016Q2

REPORT INFORMATION
  Report Type: Spontaneous
  Country: US (occurrence: None)
  Receive Date: 20160526
  Receipt Date: 20160526
  Transmission Date: 20160815
  Serious: No
  Sender: FDA-Public Use
  Company Number: None

PATIENT
  Sex: Female

DRUGS (1)
  1. TOUJEO [Suspect]
     Active Substance: INSULIN GLARGINE

REACTIONS (5)
  - Glycosylated haemoglobin increased [None]
  - Abdominal pain upper [None]
  - Maternal exposure during pregnancy [None]
  - Kidney infection [None]
  - Blood pressure increased [None]
